FAERS Safety Report 10335342 (Version 1)
Quarter: 2014Q3

REPORT INFORMATION
  Report Type: Spontaneous
  Country: US (occurrence: US)
  Receive Date: 20140723
  Receipt Date: 20140723
  Transmission Date: 20150326
  Serious: No
  Sender: FDA-Public Use
  Company Number: US-UNITED THERAPEUTICS-UTC-042843

PATIENT
  Sex: Female
  Weight: 55.5 kg

DRUGS (3)
  1. ADCIRCA [Concomitant]
     Active Substance: TADALAFIL
  2. REMODULIN [Suspect]
     Active Substance: TREPROSTINIL
     Route: 058
     Dates: start: 20061207
  3. LETAIRIS [Suspect]
     Active Substance: AMBRISENTAN
     Route: 048
     Dates: start: 20130109

REACTIONS (2)
  - Abdominal pain upper [Unknown]
  - Diarrhoea [Unknown]
